FAERS Safety Report 25944206 (Version 1)
Quarter: 2025Q4

REPORT INFORMATION
  Report Type: Report from Study
  Country: CN (occurrence: CN)
  Receive Date: 20251021
  Receipt Date: 20251021
  Transmission Date: 20260117
  Serious: Yes (Other)
  Sender: ROCHE
  Company Number: CN-ROCHE-10000412699

PATIENT

DRUGS (1)
  1. RITUXIMAB [Suspect]
     Active Substance: RITUXIMAB
     Indication: Nephrotic syndrome
     Dosage: UPTO 500MG
     Route: 042

REACTIONS (11)
  - Infusion related reaction [Recovering/Resolving]
  - Hypogammaglobulinaemia [Unknown]
  - Neutrophil count decreased [Unknown]
  - Serum sickness [Recovering/Resolving]
  - Neutropenia [Unknown]
  - Pneumonia [Unknown]
  - Sepsis [Unknown]
  - Upper respiratory tract infection [Unknown]
  - Bronchitis [Unknown]
  - Oral infection [Unknown]
  - Urinary tract infection [Unknown]
